FAERS Safety Report 4624718-0 (Version None)
Quarter: 2005Q1

REPORT INFORMATION
  Report Type: 
  Country: None (occurrence: None)
  Receive Date: 20050107
  Receipt Date: 20041023
  Transmission Date: 20050727
  Serious: No
  Sender: FDA-Public Use
  Company Number: 235331K04USA

PATIENT
  Age: 49 Year
  Sex: Female

DRUGS (5)
  1. REBIF [Suspect]
     Indication: MULTIPLE SCLEROSIS
     Dosage: 44 MCG, 3 IN 1 WEEKS
     Dates: start: 20030201
  2. WELLBUTRIN [Concomitant]
  3. SARAFEM (FLUOXETINE) [Concomitant]
  4. AMANTADINE (AMANTADINE) [Concomitant]
  5. NORTRIPTYLINE HCL [Concomitant]

REACTIONS (12)
  - DIFFICULTY IN WALKING [None]
  - GAIT DISTURBANCE [None]
  - HYPOKINESIA [None]
  - INJECTION SITE ERYTHEMA [None]
  - INJECTION SITE HAEMORRHAGE [None]
  - INJECTION SITE MASS [None]
  - INJECTION SITE PAIN [None]
  - INJECTION SITE REACTION [None]
  - MUSCLE SPASMS [None]
  - MYALGIA [None]
  - SCAB [None]
  - TREMOR [None]
